FAERS Safety Report 8376571-X (Version None)
Quarter: 2012Q2

REPORT INFORMATION
  Report Type: 
  Country: None (occurrence: None)
  Receive Date: 20120522
  Receipt Date: 20120509
  Transmission Date: 20120825
  Serious: Yes (Hospitalization, Other)
  Sender: FDA-Public Use
  Company Number: BE-MEDIMMUNE-MEDI-0015542

PATIENT
  Age: 12 Month
  Sex: Male
  Weight: 5.2 kg

DRUGS (11)
  1. SYNAGIS [Suspect]
     Route: 042
     Dates: start: 20111031, end: 20111031
  2. SYNAGIS [Suspect]
     Route: 042
     Dates: start: 20111201, end: 20111201
  3. SYNAGIS [Suspect]
     Route: 042
     Dates: start: 20120105, end: 20120105
  4. SYNAGIS [Suspect]
     Indication: PREMATURE BABY
     Route: 042
     Dates: start: 20111002, end: 20111002
  5. SYNAGIS [Suspect]
     Route: 042
     Dates: start: 20120105, end: 20120105
  6. PANTOPRAZOLE SODIUM SESQUIHYDRATE [Concomitant]
     Indication: SURGERY
     Route: 042
  7. SYNAGIS [Suspect]
     Indication: ANTIVIRAL PROPHYLAXIS
     Route: 042
     Dates: start: 20111002, end: 20111002
  8. SYNAGIS [Suspect]
     Route: 042
     Dates: start: 20120203, end: 20120203
  9. SYNAGIS [Suspect]
     Route: 042
     Dates: start: 20111031, end: 20111031
  10. SYNAGIS [Suspect]
     Route: 042
     Dates: start: 20111201, end: 20111201
  11. SYNAGIS [Suspect]
     Route: 042
     Dates: start: 20120203, end: 20120203

REACTIONS (4)
  - OXYGEN SATURATION DECREASED [None]
  - ABDOMINAL ADHESIONS [None]
  - SMALL INTESTINAL STENOSIS [None]
  - RESPIRATORY SYNCYTIAL VIRUS INFECTION [None]
